FAERS Safety Report 4314017-9 (Version None)
Quarter: 2004Q1

REPORT INFORMATION
  Report Type: 
  Country: None (occurrence: None)
  Receive Date: 20040305
  Receipt Date: 20040113
  Transmission Date: 20041129
  Serious: Yes (Hospitalization)
  Sender: FDA-Public Use
  Company Number: USA-2004-0013559

PATIENT
  Age: 37 Year
  Sex: Male

DRUGS (1)
  1. CHIROCAINE [Suspect]
     Indication: ANAESTHESIA
     Dosage: 3.3 ML, EPIDURAL
     Route: 008
     Dates: end: 20031110

REACTIONS (2)
  - HYPERAESTHESIA [None]
  - PARAESTHESIA [None]
